FAERS Safety Report 17268760 (Version 2)
Quarter: 2020Q1

REPORT INFORMATION
  Report Type: Spontaneous
  Country: US (occurrence: US)
  Receive Date: 20200114
  Receipt Date: 20200224
  Transmission Date: 20200409
  Serious: Yes (Other)
  Sender: FDA-Public Use
  Company Number: US-BAYER-2020-003169

PATIENT
  Age: 81 Year
  Sex: Male

DRUGS (1)
  1. XOFIGO [Suspect]
     Active Substance: RADIUM RA-223 DICHLORIDE
     Indication: PROSTATE CANCER
     Dosage: UNK
     Route: 042
     Dates: start: 201912

REACTIONS (4)
  - Diarrhoea [Not Recovered/Not Resolved]
  - Metastases to spine [None]
  - Pain [Recovering/Resolving]
  - Metastases to bone [None]

NARRATIVE: CASE EVENT DATE: 201912
